FAERS Safety Report 9531084 (Version 1)
Quarter: 2013Q3

REPORT INFORMATION
  Report Type: Spontaneous
  Country: US (occurrence: US)
  Receive Date: 20130918
  Receipt Date: 20130918
  Transmission Date: 20140515
  Serious: Yes (Hospitalization, Other)
  Sender: FDA-Public Use
  Company Number: US-BAYER-2013-112595

PATIENT
  Age: 17 Year
  Sex: Female

DRUGS (10)
  1. YASMIN [Suspect]
  2. GLUCOPHAGE [Concomitant]
  3. WELLBUTRIN [Concomitant]
  4. SEROQUEL [Concomitant]
  5. LEXAPRO [Concomitant]
  6. CRANBERRY EXTRACT [Concomitant]
  7. FOLIC ACID [Concomitant]
  8. LUNESTA [Concomitant]
  9. JASMINE [Concomitant]
  10. CAMILA [Concomitant]

REACTIONS (2)
  - Pulmonary embolism [Recovered/Resolved]
  - Cholelithiasis [None]
